FAERS Safety Report 14877020 (Version 2)
Quarter: 2018Q4

REPORT INFORMATION
  Report Type: Spontaneous
  Country: FR (occurrence: FR)
  Receive Date: 20180510
  Receipt Date: 20181019
  Transmission Date: 20190204
  Serious: Yes (Other)
  Sender: FDA-Public Use
  Company Number: FR-PFIZER INC-2018187622

PATIENT
  Age: 83 Year
  Sex: Male
  Weight: 78 kg

DRUGS (7)
  1. CEFTRIAXONE PANPHARMA [Suspect]
     Active Substance: CEFTRIAXONE
     Indication: LUNG INFECTION
     Dosage: 1 G, 1X/DAY (EVERY 24 HOURS)
     Route: 042
     Dates: start: 20180317, end: 20180319
  2. COUMADINE [Concomitant]
     Active Substance: WARFARIN SODIUM
     Indication: ATRIAL FIBRILLATION
     Dosage: 1 MG, 1X/DAY
     Route: 048
     Dates: start: 20180102, end: 20180321
  3. RAMIPRIL. [Concomitant]
     Active Substance: RAMIPRIL
     Indication: PROPHYLAXIS
     Dosage: 2.5 MG, 1X/DAY
     Route: 048
     Dates: start: 20180318
  4. PANTOPRAZOLE [Concomitant]
     Active Substance: PANTOPRAZOLE
     Indication: PROPHYLAXIS
     Dosage: 1 DF, 1X/DAY
     Route: 048
     Dates: start: 20180115, end: 20180323
  5. METHYLPREDNISOLONE SODIUM SUCCINATE. [Suspect]
     Active Substance: METHYLPREDNISOLONE SODIUM SUCCINATE
     Indication: LUNG INFECTION
     Dosage: 40 MG, 1X/DAY
     Route: 042
     Dates: start: 20180317, end: 20180319
  6. LASILIX /00032601/ [Suspect]
     Active Substance: FUROSEMIDE
     Indication: CARDIAC FAILURE
     Dosage: 40 MG, 1X/DAY
     Route: 048
     Dates: start: 20180309, end: 20180322
  7. BISOCE [Concomitant]
     Active Substance: BISOPROLOL
     Indication: CARDIAC FAILURE
     Dosage: UNK
     Route: 048
     Dates: start: 20180309

REACTIONS (2)
  - Condition aggravated [Recovering/Resolving]
  - Thrombocytopenia [Recovering/Resolving]

NARRATIVE: CASE EVENT DATE: 20180319
